FAERS Safety Report 7579509-8 (Version None)
Quarter: 2011Q2

REPORT INFORMATION
  Report Type: 
  Country: None (occurrence: None)
  Receive Date: 20110629
  Receipt Date: 20110609
  Transmission Date: 20111010
  Serious: Yes (Death, Other)
  Sender: FDA-Public Use
  Company Number: US-BAYER-200940063NA

PATIENT
  Age: 73 Year
  Sex: Male
  Weight: 77 kg

DRUGS (17)
  1. AMICAR [Concomitant]
     Dosage: 20 ML, UNK
     Route: 042
     Dates: start: 20011017, end: 20011017
  2. AMINOCAPROIC ACID [Concomitant]
     Dosage: 250/ML 20 ML, UNK
     Route: 042
     Dates: start: 20011017
  3. PLAVIX [Concomitant]
  4. HEPARIN [Concomitant]
  5. PRAVACHOL [Concomitant]
     Dosage: 40 MG, ONCE
     Route: 048
  6. TRASYLOL [Suspect]
     Indication: PRODUCT USED FOR UNKNOWN INDICATION
     Dosage: UNK
     Route: 042
     Dates: start: 20011017
  7. PROTAMINE SULFATE [Concomitant]
     Dosage: 10MG/ML 25 ML, UNK
     Route: 042
     Dates: start: 20011017
  8. ASPIRIN [Concomitant]
     Dosage: 81 MG, ONCE, LONGTERM USE
     Route: 048
  9. GLYNASE [Concomitant]
     Dosage: 6 MG, BID, LONGTERM USE
     Route: 048
  10. PRINIVIL [Concomitant]
     Dosage: 10 MG, BID, LONGTERM USE
     Route: 048
  11. VANCOMYCIN [Concomitant]
     Dosage: 1G 20ML, UNK
     Route: 042
     Dates: start: 20011017
  12. MAGNESIUM SULFATE [Concomitant]
     Dosage: 50 1GM/2ML, UNK
     Route: 042
     Dates: start: 20011017
  13. SINEMET [Concomitant]
     Dosage: 25/250; 1-TABLET THREE TIMES DAILY;ONE HALF AT BEDTIME
     Route: 048
  14. ZOCOR [Concomitant]
  15. OPTIRAY 300 [Concomitant]
     Dosage: 350/150 ML, UNK
     Route: 042
     Dates: start: 20011015
  16. DYAZIDE [Concomitant]
     Dosage: 12.5 MG, ONCE, LONGTERM USE
     Route: 048
  17. DOPAMINE HCL [Concomitant]
     Dosage: 1.6 MG/ ML, UNK
     Route: 042
     Dates: start: 20011017

REACTIONS (13)
  - STRESS [None]
  - UNEVALUABLE EVENT [None]
  - RENAL IMPAIRMENT [None]
  - ANXIETY [None]
  - FEAR [None]
  - RENAL FAILURE [None]
  - DEATH [None]
  - RENAL INJURY [None]
  - MULTI-ORGAN FAILURE [None]
  - ANHEDONIA [None]
  - INJURY [None]
  - PAIN [None]
  - EMOTIONAL DISTRESS [None]
